FAERS Safety Report 10051859 (Version 1)
Quarter: 2014Q2

REPORT INFORMATION
  Report Type: Spontaneous
  Country: US (occurrence: US)
  Receive Date: 20140402
  Receipt Date: 20140402
  Transmission Date: 20141212
  Serious: Yes (Other)
  Sender: FDA-Public Use
  Company Number: US-PFIZER INC-2014088206

PATIENT
  Age: 75 Year
  Sex: Female
  Weight: 83 kg

DRUGS (13)
  1. CELEBREX [Suspect]
     Indication: ARTHRITIS
     Dosage: 200 MG, 1X/DAY
     Route: 048
  2. DILANTIN [Suspect]
     Indication: CONVULSION
     Dosage: 200 MG (BY TAKING TWO CAPSULES TOGETHER), 2X/DAY
     Route: 048
  3. TOVIAZ [Suspect]
     Indication: HYPERTONIC BLADDER
     Dosage: 8 MG, 1X/DAY
     Route: 048
  4. HYDROCODONE [Suspect]
     Indication: RIB FRACTURE
     Dosage: UNK
     Dates: start: 20140318
  5. HYDROCODONE [Suspect]
     Indication: PAIN
  6. COREG [Concomitant]
     Dosage: 6.25 MG, 2X/DAY
  7. PLAVIX [Concomitant]
     Dosage: 75 MG, 1X/DAY
  8. HYZAAR [Concomitant]
     Dosage: 100 MG, 1X/DAY
  9. ZETIA [Concomitant]
     Dosage: 10 MG, 1X/DAY
  10. FUROSEMIDE [Concomitant]
     Indication: DIURETIC THERAPY
     Dosage: 20 MG, 1X/DAY
  11. AMLODIPINE [Concomitant]
     Dosage: UNK
  12. ATORVASTATIN [Concomitant]
     Dosage: UNK
  13. HYDROCODONE [Concomitant]
     Indication: PAIN
     Dosage: UNK

REACTIONS (5)
  - Balance disorder [Unknown]
  - Fall [Unknown]
  - Rib fracture [Unknown]
  - Pain [Unknown]
  - Feeling abnormal [Unknown]
